FAERS Safety Report 16744155 (Version 3)
Quarter: 2020Q4

REPORT INFORMATION
  Report Type: Report from Study
  Country: ES (occurrence: ES)
  Receive Date: 20190827
  Receipt Date: 20201030
  Transmission Date: 20210113
  Serious: Yes (Other)
  Sender: FDA-Public Use
  Company Number: ES-TEVA-2019-ES-1098458

PATIENT
  Sex: Female

DRUGS (1)
  1. COPAXONE [Suspect]
     Active Substance: GLATIRAMER ACETATE
     Indication: RELAPSING-REMITTING MULTIPLE SCLEROSIS
     Route: 058
     Dates: start: 20160201

REACTIONS (8)
  - Injection site haematoma [Unknown]
  - Injection site reaction [Unknown]
  - Monoplegia [Recovered/Resolved]
  - Injection site haemorrhage [Recovered/Resolved]
  - Injection site induration [Not Recovered/Not Resolved]
  - Injection site pain [Recovered/Resolved]
  - Injection site swelling [Recovered/Resolved]
  - Injection site pain [Not Recovered/Not Resolved]
